FAERS Safety Report 8781976 (Version 2)
Quarter: 2012Q4

REPORT INFORMATION
  Report Type: 
  Country: US (occurrence: US)
  Receive Date: 20120913
  Receipt Date: 20121218
  Transmission Date: 20130627
  Serious: Yes (Other)
  Sender: FDA-Public Use
  Company Number: US-BAYER-2012-094594

PATIENT
  Age: 37 Year
  Sex: Female
  Weight: 57 kg

DRUGS (5)
  1. YAZ [Suspect]
     Dosage: UNK
     Dates: start: 20090102, end: 201206
  2. SINGULAIR [Concomitant]
     Indication: SINUSITIS NOS
  3. ENABLEX [Concomitant]
     Indication: BLADDER SPASM
  4. GE PHENAZOPYRIDINE [Concomitant]
     Indication: BLADDER SPASM
  5. INDERAL [Concomitant]
     Indication: MIGRAINE
     Dosage: UNK UNK, PRN

REACTIONS (9)
  - Cholecystectomy [None]
  - Cholecystitis chronic [None]
  - Urinary tract infection [None]
  - Migraine [None]
  - Injury [None]
  - Emotional distress [None]
  - Anxiety [None]
  - Psychological trauma [None]
  - Pain [None]
